FAERS Safety Report 21806232 (Version 2)
Quarter: 2023Q1

REPORT INFORMATION
  Report Type: Report from Study
  Country: JP (occurrence: JP)
  Receive Date: 20230102
  Receipt Date: 20230201
  Transmission Date: 20230418
  Serious: Yes (Hospitalization)
  Sender: FDA-Public Use
  Company Number: JP-ONO-2022JP021017

PATIENT
  Age: 64 Year
  Sex: Male
  Weight: 60 kg

DRUGS (25)
  1. ETELCALCETIDE [Suspect]
     Active Substance: ETELCALCETIDE
     Indication: Hyperparathyroidism secondary
     Dosage: 5 MG, Q56H
     Route: 010
     Dates: start: 20220321
  2. DARBEPOETIN ALFA [Concomitant]
     Active Substance: DARBEPOETIN ALFA
     Dosage: 15 MUG, QW
     Route: 065
     Dates: start: 20200321, end: 20200514
  3. DARBEPOETIN ALFA [Concomitant]
     Active Substance: DARBEPOETIN ALFA
     Dosage: 10 MUG, QW
     Dates: start: 20200516, end: 20200528
  4. DARBEPOETIN ALFA [Concomitant]
     Active Substance: DARBEPOETIN ALFA
     Dosage: 5 MUG, QW
     Dates: start: 20200530, end: 20200718
  5. DARBEPOETIN ALFA [Concomitant]
     Active Substance: DARBEPOETIN ALFA
     Dosage: 60 MUG, QW
     Dates: start: 20210731, end: 20210913
  6. DARBEPOETIN ALFA [Concomitant]
     Active Substance: DARBEPOETIN ALFA
     Dosage: 20 MUG, QW
     Dates: start: 20210915, end: 20211014
  7. DARBEPOETIN ALFA [Concomitant]
     Active Substance: DARBEPOETIN ALFA
     Dosage: 20 MUG, QW
     Dates: start: 20211030, end: 20220119
  8. DARBEPOETIN ALFA [Concomitant]
     Active Substance: DARBEPOETIN ALFA
     Dosage: 30 MUG, QW
     Dates: start: 20220121, end: 20220413
  9. DARBEPOETIN ALFA [Concomitant]
     Active Substance: DARBEPOETIN ALFA
     Dosage: 20 MUG, QW
     Dates: start: 20220415, end: 20220518
  10. DARBEPOETIN ALFA [Concomitant]
     Active Substance: DARBEPOETIN ALFA
     Dosage: 15 MUG, QW
     Dates: start: 20220520, end: 20220615
  11. DARBEPOETIN ALFA [Concomitant]
     Active Substance: DARBEPOETIN ALFA
     Dosage: 10 MUG, QW
     Dates: start: 20220617, end: 20220720
  12. DARBEPOETIN ALFA [Concomitant]
     Active Substance: DARBEPOETIN ALFA
     Dosage: 5 MUG, QW
     Dates: start: 20220722, end: 20221109
  13. DARBEPOETIN ALFA [Concomitant]
     Active Substance: DARBEPOETIN ALFA
     Dosage: 10 MUG, QW
     Dates: start: 20221111
  14. ALFAROL [Concomitant]
     Active Substance: ALFACALCIDOL
     Dosage: 0.25 MICROGRAM, QD
     Route: 065
     Dates: start: 20190705, end: 20210408
  15. ALFAROL [Concomitant]
     Active Substance: ALFACALCIDOL
     Dosage: 0.5 MICROGRAM, QD
     Route: 065
     Dates: start: 20210409, end: 20210923
  16. ALFAROL [Concomitant]
     Active Substance: ALFACALCIDOL
     Dosage: 1 MUG, EVERYDAY
     Route: 065
     Dates: start: 20210924, end: 20211231
  17. ALFAROL [Concomitant]
     Active Substance: ALFACALCIDOL
     Dosage: 0.25 MUG, EVERYDAY
     Route: 065
     Dates: start: 20220321, end: 20220622
  18. ALFAROL [Concomitant]
     Active Substance: ALFACALCIDOL
     Dosage: 0.5 MUG, EVERYDAY
     Route: 065
     Dates: start: 20220623
  19. FERRIC HYDROXIDE [Concomitant]
     Active Substance: FERRIC HYDROXIDE
     Dosage: 750 MG, EVERYDAY
     Route: 065
     Dates: end: 20191010
  20. FERRIC HYDROXIDE [Concomitant]
     Active Substance: FERRIC HYDROXIDE
     Dosage: 1500 MG, EVERYDAY
     Dates: start: 20191011, end: 20191227
  21. FERRIC HYDROXIDE [Concomitant]
     Active Substance: FERRIC HYDROXIDE
     Dosage: 750 MG, EVERYDAY
     Dates: start: 20191228, end: 20200228
  22. FERRIC HYDROXIDE [Concomitant]
     Active Substance: FERRIC HYDROXIDE
     Dosage: 750 MG, EVERYDAY
     Dates: start: 20211013
  23. SODIUM FERROUS CITRATE [Concomitant]
     Active Substance: SODIUM FERROUS CITRATE
     Dosage: 100 MG, EVERYDAY
     Route: 065
     Dates: end: 20201005
  24. SODIUM FERROUS CITRATE [Concomitant]
     Active Substance: SODIUM FERROUS CITRATE
     Dosage: 200 MG, EVERYDAY
     Dates: start: 20211106, end: 20220518
  25. SODIUM FERROUS CITRATE [Concomitant]
     Active Substance: SODIUM FERROUS CITRATE
     Dosage: 100 MG, EVERYDAY
     Dates: start: 20220519

REACTIONS (2)
  - Peripheral arterial occlusive disease [Recovered/Resolved]
  - Shunt stenosis [Recovering/Resolving]

NARRATIVE: CASE EVENT DATE: 20220609
